FAERS Safety Report 9281809 (Version 1)
Quarter: 2013Q2

REPORT INFORMATION
  Report Type: Spontaneous
  Country: GB (occurrence: GB)
  Receive Date: 20130510
  Receipt Date: 20130510
  Transmission Date: 20140414
  Serious: Yes (Other)
  Sender: FDA-Public Use
  Company Number: GB-ABBOTT-13X-167-1085121-00

PATIENT
  Sex: Female
  Weight: 35 kg

DRUGS (1)
  1. CREON [Suspect]
     Indication: PANCREATIC INSUFFICIENCY
     Dosage: 25K FOR MEALS AND CREON 10K FOR SNACKS

REACTIONS (3)
  - Pelvic prolapse [Unknown]
  - Pituitary tumour [Unknown]
  - Aptyalism [Unknown]
